FAERS Safety Report 21237269 (Version 1)
Quarter: 2022Q3

REPORT INFORMATION
  Report Type: Spontaneous
  Country: IN (occurrence: IN)
  Receive Date: 20220822
  Receipt Date: 20220822
  Transmission Date: 20221027
  Serious: Yes (Hospitalization, Other)
  Sender: FDA-Public Use
  Company Number: IN-ATLANTIDE PHARMACEUTICALS AG-2022ATL000068

PATIENT
  Age: 8 Year
  Sex: Male

DRUGS (2)
  1. CEFTRIAXONE [Suspect]
     Active Substance: CEFTRIAXONE
     Indication: Typhoid fever
     Dosage: 1 GRAM, QD
     Route: 042
  2. OFLOXACIN [Concomitant]
     Active Substance: OFLOXACIN
     Indication: Typhoid fever
     Dosage: 100 MG BID
     Route: 048

REACTIONS (1)
  - Toxic encephalopathy [Recovered/Resolved]
